FAERS Safety Report 8540899-0 (Version None)
Quarter: 2012Q3

REPORT INFORMATION
  Report Type: 
  Country: None (occurrence: None)
  Receive Date: 20120726
  Receipt Date: 20120723
  Transmission Date: 20120928
  Serious: Yes (Other)
  Sender: FDA-Public Use
  Company Number: US-PFIZER INC-2012178187

PATIENT
  Sex: Male

DRUGS (4)
  1. LYRICA [Suspect]
     Indication: BACK PAIN
     Dosage: 50MG IN MORNING AND 100MG AT NIGHT
     Route: 048
     Dates: start: 20111101, end: 20120521
  2. LYRICA [Suspect]
     Dosage: 50 MG, 2X/DAY
     Route: 048
     Dates: start: 20120522
  3. LYRICA [Suspect]
     Dosage: 50 MG, 1X/DAY
     Route: 048
     Dates: end: 20120701
  4. LYRICA [Suspect]
     Indication: PAIN IN EXTREMITY
     Dosage: 50 MG, 2X/DAY
     Route: 048
     Dates: start: 20111101, end: 20111101

REACTIONS (2)
  - PAIN IN EXTREMITY [None]
  - SOMNOLENCE [None]
